FAERS Safety Report 12299132 (Version 1)
Quarter: 2016Q2

REPORT INFORMATION
  Report Type: Spontaneous
  Country: US (occurrence: US)
  Receive Date: 20160425
  Receipt Date: 20160425
  Transmission Date: 20160815
  Serious: No
  Sender: FDA-Public Use
  Company Number: US-JAZZ-2015-US-013179

PATIENT
  Age: 15 Year
  Sex: Male

DRUGS (3)
  1. LUVOX CR [Suspect]
     Active Substance: FLUVOXAMINE MALEATE
     Indication: OBSESSIVE-COMPULSIVE DISORDER
     Dosage: 200 MG, UNK
     Route: 048
  2. LUVOX CR [Suspect]
     Active Substance: FLUVOXAMINE MALEATE
     Dosage: 300 MG, UNK
     Route: 048
  3. LUVOX CR [Suspect]
     Active Substance: FLUVOXAMINE MALEATE
     Dosage: 200 MG, UNK
     Route: 048

REACTIONS (2)
  - Occult blood positive [Not Recovered/Not Resolved]
  - Abdominal pain [Unknown]

NARRATIVE: CASE EVENT DATE: 2015
